FAERS Safety Report 10437618 (Version 1)
Quarter: 2014Q3

REPORT INFORMATION
  Report Type: Spontaneous
  Country: NL (occurrence: None)
  Receive Date: 20140904
  Receipt Date: 20140904
  Transmission Date: 20150326
  Serious: Yes (Hospitalization)
  Sender: FDA-Public Use
  Company Number: NL-ZYDUS-004526

PATIENT
  Age: 17 Year
  Sex: Female

DRUGS (2)
  1. RISPERIDONE (RISPERIDONE) [Suspect]
     Active Substance: RISPERIDONE
     Indication: AGITATION
     Dosage: 1.00-MG-2.00 TIMES PER-1.0 DAYS
     Route: 048
  2. HALOPERIDOL (HALOPERIDOL) (HALOPERIDOL) [Suspect]
     Active Substance: HALOPERIDOL
     Indication: AGITATION
     Dosage: 0.20-MG-3.00 TIMES/ORAL PER-1.0 DAYS
     Route: 048

REACTIONS (5)
  - Tremor [None]
  - General physical health deterioration [None]
  - Encephalitis autoimmune [None]
  - Parkinsonism [None]
  - Sedation [None]
